FAERS Safety Report 9668921 (Version 4)
Quarter: 2014Q1

REPORT INFORMATION
  Report Type: Spontaneous
  Country: GB (occurrence: GB)
  Receive Date: 20131105
  Receipt Date: 20140326
  Transmission Date: 20141002
  Serious: Yes (Life-Threatening, Hospitalization, Disabling)
  Sender: FDA-Public Use
  Company Number: GB-MYLANLABS-2011S1018464

PATIENT
  Age: 31 Year
  Sex: Female
  Weight: 63.5 kg

DRUGS (26)
  1. MIRTAZAPINE [Suspect]
     Indication: DEPRESSION
     Route: 048
  2. MIRTAZAPINE [Suspect]
     Indication: DEPRESSION
     Route: 048
  3. MIRTAZAPINE [Suspect]
     Indication: DEPRESSION
     Route: 048
     Dates: start: 20100923
  4. OMEPRAZOLE [Suspect]
     Indication: DYSPEPSIA
     Dates: start: 20110525
  5. PAROXETINE [Suspect]
     Indication: POST-TRAUMATIC STRESS DISORDER
     Route: 048
     Dates: start: 19990801, end: 20110706
  6. PAROXETINE [Suspect]
     Indication: DEPRESSION
     Route: 048
     Dates: start: 19990801, end: 20110706
  7. PROCYCLIDINE [Suspect]
     Indication: EXTRAPYRAMIDAL DISORDER
     Route: 048
     Dates: start: 20110503, end: 20110510
  8. PROCYCLIDINE [Suspect]
     Indication: OCULOGYRIC CRISIS
     Route: 048
     Dates: start: 20110503, end: 20110510
  9. PROCYCLIDINE [Suspect]
     Indication: EXTRAPYRAMIDAL DISORDER
     Dates: start: 1995, end: 1996
  10. PROCYCLIDINE [Suspect]
     Indication: OCULOGYRIC CRISIS
     Dates: start: 1995, end: 1996
  11. CLONAZEPAM [Suspect]
     Indication: SEDATION
     Route: 048
     Dates: start: 20110224, end: 20110410
  12. LORAZEPAM [Suspect]
     Indication: SEDATION
     Route: 048
     Dates: start: 20110523, end: 20110627
  13. LORAZEPAM [Suspect]
     Indication: SEDATION
     Dates: start: 20110224, end: 20110410
  14. QUETIAPINE [Suspect]
     Indication: PSYCHOTIC DISORDER
     Route: 048
     Dates: start: 20110224, end: 20110506
  15. SEROXAT [Suspect]
     Indication: DEPRESSION
     Route: 048
     Dates: start: 19990801, end: 201105
  16. SEROXAT [Suspect]
     Indication: DEPRESSION
     Route: 048
     Dates: start: 201105, end: 20110706
  17. TRAMADOL [Suspect]
     Indication: ANALGESIC THERAPY
     Route: 048
     Dates: start: 20081201, end: 20101210
  18. TRAMADOL [Suspect]
     Indication: NECK PAIN
     Route: 048
     Dates: start: 20081201, end: 20101210
  19. TRAMADOL [Suspect]
     Indication: ANALGESIC THERAPY
     Dosage: 50-100 MG QDS
     Dates: start: 20080722
  20. TRAMADOL [Suspect]
     Indication: NECK PAIN
     Dosage: 50-100 MG QDS
     Dates: start: 20080722
  21. AMITRIPTYLINE [Suspect]
     Indication: MUSCLE SPASMS
     Dates: start: 20110810
  22. CODEINE [Suspect]
     Indication: ANALGESIC THERAPY
     Dosage: 15-30 MG QDS
     Route: 048
     Dates: start: 2002, end: 2002
  23. CODEINE [Suspect]
     Indication: ANALGESIC THERAPY
     Dates: start: 2008, end: 2008
  24. CODEINE [Suspect]
     Indication: ANALGESIC THERAPY
     Route: 048
     Dates: start: 20110615, end: 20110723
  25. DIAZEPAM [Suspect]
     Indication: MUSCLE SPASMS
     Dates: start: 20110725
  26. DOMPERIDONE [Suspect]
     Indication: PRODUCT USED FOR UNKNOWN INDICATION

REACTIONS (74)
  - Nightmare [Unknown]
  - Contusion [Unknown]
  - Malaise [Unknown]
  - Muscle spasms [Not Recovered/Not Resolved]
  - Mania [Unknown]
  - Exposure during pregnancy [Unknown]
  - Dyspnoea [Unknown]
  - Fatigue [Unknown]
  - Musculoskeletal stiffness [Unknown]
  - Tremor [Not Recovered/Not Resolved]
  - Feeling jittery [Unknown]
  - Premature labour [Unknown]
  - Sleep disorder [Unknown]
  - Headache [Unknown]
  - Myalgia [Unknown]
  - Arthralgia [Unknown]
  - Feeling of despair [Unknown]
  - Disturbance in attention [Unknown]
  - Restlessness [Unknown]
  - Asthenia [Unknown]
  - Confusional state [Unknown]
  - Muscle disorder [Unknown]
  - Emotional disorder [Unknown]
  - Irritability [Unknown]
  - Visual impairment [Unknown]
  - Depression [Unknown]
  - Suicidal ideation [Not Recovered/Not Resolved]
  - Decreased appetite [Unknown]
  - Dizziness [Unknown]
  - Blood sodium decreased [Unknown]
  - Depersonalisation [Unknown]
  - H1N1 influenza [Unknown]
  - Menstruation irregular [Unknown]
  - Insomnia [Unknown]
  - Convulsion [Unknown]
  - Pruritus [Unknown]
  - Psychotic disorder [Unknown]
  - Sensory loss [Unknown]
  - Malaise [Unknown]
  - Feeling of body temperature change [Unknown]
  - Incontinence [Not Recovered/Not Resolved]
  - Urinary retention [Unknown]
  - Balance disorder [Unknown]
  - Swollen tongue [Unknown]
  - Vision blurred [Unknown]
  - Speech disorder [Unknown]
  - Hypoaesthesia [Unknown]
  - Swelling face [Unknown]
  - Lip swelling [Unknown]
  - Oedema mouth [Unknown]
  - Hyperchlorhydria [Unknown]
  - VIIth nerve paralysis [Unknown]
  - Tinnitus [Unknown]
  - Cogwheel rigidity [Unknown]
  - Drooling [Unknown]
  - Eye pain [Unknown]
  - Schizophrenia [Unknown]
  - Condition aggravated [Unknown]
  - Gait disturbance [Unknown]
  - Pupillary light reflex tests abnormal [Unknown]
  - Serotonin syndrome [Not Recovered/Not Resolved]
  - Drug interaction [Unknown]
  - Toxicity to various agents [Unknown]
  - Paraesthesia [Unknown]
  - Neuroleptic malignant syndrome [Not Recovered/Not Resolved]
  - Cyanosis [Unknown]
  - Drug withdrawal syndrome [Unknown]
  - Dystonia [Unknown]
  - Pallor [Unknown]
  - Paralysis [Unknown]
  - Mydriasis [Unknown]
  - Restlessness [Unknown]
  - Muscle rigidity [Unknown]
  - Tachycardia [Unknown]
